FAERS Safety Report 9996866 (Version 4)
Quarter: 2014Q2

REPORT INFORMATION
  Report Type: Report from Study
  Country: JP (occurrence: JP)
  Receive Date: 20140311
  Receipt Date: 20140423
  Transmission Date: 20141212
  Serious: Yes (Other)
  Sender: FDA-Public Use
  Company Number: JP-BAXTER-2014BAX011166

PATIENT
  Age: 35 Year
  Sex: Female
  Weight: 54 kg

DRUGS (15)
  1. SUPRANE [Suspect]
     Indication: SKIN SCAR CONTRACTURE
     Dosage: 3.0-3.7%
     Route: 055
     Dates: start: 20140224, end: 20140224
  2. ULTIVA [Suspect]
     Indication: MAINTENANCE OF ANAESTHESIA
     Dosage: 0.3 MG PER HOUR
     Route: 041
     Dates: start: 20140224, end: 20140224
  3. ULTIVA [Suspect]
     Indication: ANALGESIC THERAPY
  4. ULTIVA [Suspect]
     Indication: INDUCTION OF ANAESTHESIA
  5. GASTER [Concomitant]
     Indication: PROPHYLAXIS
     Route: 042
     Dates: start: 20140224, end: 20140224
  6. DIPRIVAN [Concomitant]
     Indication: ANAESTHESIA PROCEDURE
     Route: 042
     Dates: start: 20140224, end: 20140224
  7. ESLAX [Concomitant]
     Indication: MUSCLE RELAXANT THERAPY
     Route: 042
     Dates: start: 20140224, end: 20140224
  8. XYLOCAINE [Concomitant]
     Indication: ANALGESIC THERAPY
     Route: 007
     Dates: start: 20140224, end: 20140224
  9. XYLOCAINE [Concomitant]
     Indication: PROPHYLAXIS
  10. ANAPEINE [Concomitant]
     Indication: ANALGESIC THERAPY
     Dosage: CONTINUOUS
     Route: 007
     Dates: start: 20140224
  11. ANAPEINE [Concomitant]
     Indication: PROPHYLAXIS
  12. FENTANYL [Concomitant]
     Indication: ANALGESIC THERAPY
     Route: 007
     Dates: start: 20140224
  13. FENTANYL [Concomitant]
     Indication: PROPHYLAXIS
  14. ROPION [Concomitant]
     Indication: ANALGESIC THERAPY
     Route: 042
     Dates: start: 20140224, end: 20140224
  15. BRIDION [Concomitant]
     Indication: ANAESTHESIA REVERSAL
     Route: 042
     Dates: start: 20140224, end: 20140224

REACTIONS (1)
  - Supraventricular tachycardia [Recovered/Resolved]
